FAERS Safety Report 5717227-9 (Version None)
Quarter: 2008Q2

REPORT INFORMATION
  Report Type: 
  Country: None (occurrence: None)
  Receive Date: 20080423
  Receipt Date: 20080418
  Transmission Date: 20081010
  Serious: Yes (Hospitalization, Other)
  Sender: FDA-Public Use
  Company Number: 2008SP007306

PATIENT
  Age: 49 Year
  Sex: Male

DRUGS (4)
  1. REBETOL [Suspect]
     Indication: HEPATITIS C
     Dosage: 1000 MG; QD; PO;
     Route: 048
     Dates: start: 20071015
  2. REBETOL [Suspect]
     Indication: HEPATITIS C
     Dosage: 1000 MG; QD; PO;
     Route: 048
     Dates: start: 20071201
  3. PEGASYS [Suspect]
     Indication: HEPATITIS C
     Dosage: 180 MCG; QW
     Dates: start: 20071015
  4. PEGASYS [Suspect]
     Indication: HEPATITIS C
     Dosage: 180 MCG; QW
     Dates: start: 20071201

REACTIONS (10)
  - CHROMATURIA [None]
  - CONDITION AGGRAVATED [None]
  - DEPRESSION [None]
  - DIABETES MELLITUS [None]
  - HAEMATEMESIS [None]
  - HEADACHE [None]
  - HEPATIC STEATOSIS [None]
  - PAIN [None]
  - SUICIDAL IDEATION [None]
  - VISION BLURRED [None]
